FAERS Safety Report 10996088 (Version 1)
Quarter: 2015Q2

REPORT INFORMATION
  Report Type: Spontaneous
  Country: US (occurrence: US)
  Receive Date: 20150407
  Receipt Date: 20150407
  Transmission Date: 20150821
  Serious: No
  Sender: FDA-Public Use
  Company Number: US-009507513-1503USA011561

PATIENT
  Age: 30 Year
  Sex: Female
  Weight: 72.57 kg

DRUGS (2)
  1. NUVARING [Suspect]
     Active Substance: ETHINYL ESTRADIOL\ETONOGESTREL
     Indication: CONTRACEPTION
     Dosage: ONE RING INSERTED FOR 3 WEEKS, ONE RING FREE
     Route: 067
     Dates: start: 200706
  2. NUVARING [Suspect]
     Active Substance: ETHINYL ESTRADIOL\ETONOGESTREL
     Indication: OVARIAN CYST

REACTIONS (3)
  - Drug administration error [Unknown]
  - Therapeutic response unexpected [Unknown]
  - Device expulsion [Unknown]

NARRATIVE: CASE EVENT DATE: 200706
